FAERS Safety Report 4623666-X (Version None)
Quarter: 2005Q1

REPORT INFORMATION
  Report Type: 
  Country: None (occurrence: None)
  Receive Date: 20050331
  Receipt Date: 20050319
  Transmission Date: 20050727
  Serious: Yes (Other)
  Sender: FDA-Public Use
  Company Number: US-JNJFOC-20050305935

PATIENT
  Age: 45 Year
  Sex: Female

DRUGS (11)
  1. REMICADE [Suspect]
     Route: 042
  2. REMICADE [Suspect]
     Route: 042
  3. REMICADE [Suspect]
     Dosage: 6TH INFUSION
     Route: 042
  4. REMICADE [Suspect]
     Dosage: THIRD INFUSION
     Route: 042
  5. REMICADE [Suspect]
     Route: 042
  6. CELEBREX [Concomitant]
  7. METHOTREXATE [Concomitant]
  8. MEDROL [Concomitant]
  9. ARAVA [Concomitant]
  10. SOLU-CORTEF [Concomitant]
     Indication: PREMEDICATION
     Route: 042
  11. BENADRYL [Concomitant]
     Indication: PREMEDICATION
     Route: 042

REACTIONS (9)
  - ARTHRALGIA [None]
  - DYSPNOEA [None]
  - FLUSHING [None]
  - INFUSION RELATED REACTION [None]
  - JOINT STIFFNESS [None]
  - MUSCLE SPASMS [None]
  - PRURITUS [None]
  - RHEUMATOID ARTHRITIS [None]
  - TRISMUS [None]
